FAERS Safety Report 8979268 (Version 1)
Quarter: 2012Q4

REPORT INFORMATION
  Report Type: 
  Country: US (occurrence: US)
  Receive Date: 20121221
  Receipt Date: 20121221
  Transmission Date: 20130627
  Serious: Yes (Hospitalization)
  Sender: FDA-Public Use
  Company Number: US-TEVA-346760USA

PATIENT
  Sex: Male

DRUGS (4)
  1. AMPHETAMINE W/DEXTROAMPHETAMINE [Suspect]
     Indication: ATTENTION DEFICIT/HYPERACTIVITY DISORDER
     Route: 048
     Dates: start: 20120702, end: 20120708
  2. KLONOPIN [Concomitant]
     Indication: PANIC ATTACK
  3. VIIBRID [Concomitant]
     Indication: DEPRESSION
  4. NALTREXONE [Concomitant]

REACTIONS (10)
  - Somnolence [Unknown]
  - Drug ineffective [Unknown]
  - Anger [Unknown]
  - Agitation [Unknown]
  - Somnolence [Unknown]
  - Vision blurred [Unknown]
  - Disturbance in attention [Unknown]
  - Ocular hyperaemia [Unknown]
  - Aggression [Unknown]
  - Sexual dysfunction [Unknown]
